FAERS Safety Report 13086407 (Version 4)
Quarter: 2017Q1

REPORT INFORMATION
  Report Type: Report from Study
  Country: US (occurrence: US)
  Receive Date: 20170104
  Receipt Date: 20170213
  Transmission Date: 20170428
  Serious: Yes (Hospitalization)
  Sender: FDA-Public Use
  Company Number: US-ACTELION-A-NJ2016-137341

PATIENT
  Age: 29 Year
  Sex: Female

DRUGS (6)
  1. VELETRI [Suspect]
     Active Substance: EPOPROSTENOL
     Dosage: 8 NG/KG, PER MIN
     Route: 042
  2. VELETRI [Suspect]
     Active Substance: EPOPROSTENOL
     Indication: PULMONARY ARTERIAL HYPERTENSION
     Dosage: 15 NG/KG, PER MIN
     Route: 042
  3. VELETRI [Suspect]
     Active Substance: EPOPROSTENOL
     Dosage: 7 NG/KG, PER MIN
     Route: 042
     Dates: start: 20160520
  4. OPSUMIT [Suspect]
     Active Substance: MACITENTAN
     Indication: PULMONARY ARTERIAL HYPERTENSION
     Dosage: 10 MG, QD
     Route: 048
     Dates: start: 20160609
  5. ADCIRCA [Concomitant]
     Active Substance: TADALAFIL
  6. WARFARIN [Concomitant]
     Active Substance: WARFARIN

REACTIONS (20)
  - Catheter site discharge [Unknown]
  - Pyrexia [Unknown]
  - Headache [Unknown]
  - Hypoaesthesia [Unknown]
  - Thrombosis in device [Unknown]
  - Catheter site pruritus [Unknown]
  - Device related infection [Unknown]
  - Device breakage [Unknown]
  - Catheter site erythema [Unknown]
  - Catheter site pain [Unknown]
  - Drug hypersensitivity [Unknown]
  - Catheter site rash [Unknown]
  - Nausea [Unknown]
  - Urticaria [Unknown]
  - Catheter site inflammation [Unknown]
  - Medical device change [Unknown]
  - Respiratory tract infection [Unknown]
  - Device leakage [Unknown]
  - Catheter site haemorrhage [Unknown]
  - Peripheral swelling [Unknown]

NARRATIVE: CASE EVENT DATE: 20170101
